FAERS Safety Report 8798942 (Version 1)
Quarter: 2012Q4

REPORT INFORMATION
  Report Type: Spontaneous
  Country: BR (occurrence: None)
  Receive Date: 20120913
  Receipt Date: 20120913
  Transmission Date: 20130627
  Serious: Yes (Other)
  Sender: FDA-Public Use
  Company Number: B0829349A

PATIENT
  Age: 34 Year
  Sex: Male

DRUGS (4)
  1. LAMIVUDINE [Suspect]
  2. TENOFOVIR [Suspect]
  3. ATAZANAVIR [Suspect]
  4. RITONAVIR [Suspect]

REACTIONS (6)
  - Immune reconstitution inflammatory syndrome [None]
  - Hyperuricaemia [None]
  - Tenderness [None]
  - Inflammation [None]
  - Skin exfoliation [None]
  - Gout [None]
